FAERS Safety Report 9240086 (Version 1)
Quarter: 2013Q2

REPORT INFORMATION
  Report Type: Spontaneous
  Country: US (occurrence: US)
  Receive Date: 20130418
  Receipt Date: 20130418
  Transmission Date: 20140414
  Serious: No
  Sender: FDA-Public Use
  Company Number: US-SANOFI-AVENTIS-2012SA038634

PATIENT
  Age: 23 Year
  Sex: Male

DRUGS (7)
  1. LOVENOX [Suspect]
     Indication: THROMBOSIS
     Route: 065
     Dates: start: 20120522, end: 20120522
  2. ASPIRIN [Concomitant]
  3. DOXYCYCLINE [Concomitant]
  4. LISINOPRIL [Concomitant]
  5. BUPROPION [Concomitant]
     Indication: SMOKING CESSATION THERAPY
  6. OMEPRAZOLE [Concomitant]
     Indication: ULCER
  7. ABILIFY [Concomitant]

REACTIONS (4)
  - Abdominal pain upper [Not Recovered/Not Resolved]
  - Malaise [Not Recovered/Not Resolved]
  - Diarrhoea [Not Recovered/Not Resolved]
  - Injection site bruising [Not Recovered/Not Resolved]
